FAERS Safety Report 8592778 (Version 4)
Quarter: 2013Q2

REPORT INFORMATION
  Report Type: Report from Study
  Country: JP (occurrence: JP)
  Receive Date: 20120603
  Receipt Date: 20130530
  Transmission Date: 20140414
  Serious: Yes (Other)
  Sender: FDA-Public Use
  Company Number: JP-VERTEX PHARMACEUTICALS INC.-AE-2012-007857

PATIENT
  Age: 60 Year
  Sex: Male

DRUGS (16)
  1. VX-950 (TELAPREVIR) [Suspect]
     Indication: CHRONIC HEPATITIS C
     Dosage: 1500 MG, QD
     Route: 048
     Dates: start: 20120411, end: 20120518
  2. VX-950 (TELAPREVIR) [Suspect]
     Dosage: 1500 MG, QD
     Route: 048
     Dates: start: 20120711
  3. REBETOL [Suspect]
     Indication: CHRONIC HEPATITIS C
     Dosage: 400 MG, QD
     Route: 048
     Dates: start: 20120411, end: 20120424
  4. REBETOL [Suspect]
     Dosage: 200 MG, QD
     Route: 048
     Dates: start: 20120425, end: 20120524
  5. REBETOL [Suspect]
     Dosage: 400 MG, QD
     Route: 048
     Dates: start: 20120525, end: 20120924
  6. PEGINTRON [Suspect]
     Indication: CHRONIC HEPATITIS C
     Dosage: 70 ?G, QW
     Route: 058
     Dates: start: 20120411, end: 20120529
  7. PEGINTRON [Suspect]
     Dosage: 1.5 ?G/KG, QW
     Route: 058
     Dates: start: 20120605, end: 20120918
  8. MAINTATE [Concomitant]
     Dosage: 5 MG, QD
     Route: 048
  9. GASTER D [Concomitant]
     Dosage: 20 MG, QD
     Route: 048
  10. ATELEC [Concomitant]
     Dosage: 10 MG, QD
     Route: 048
  11. THYRADIN [Concomitant]
     Dosage: 25 ?G, QD
     Route: 048
  12. FEBURIC [Concomitant]
     Dosage: 20 MG, QD
     Route: 048
     Dates: end: 20120611
  13. SOLANAX [Concomitant]
     Dosage: 0.8 MG, QD
     Route: 048
  14. WARFARIN [Concomitant]
     Route: 048
  15. PREMINENT [Concomitant]
     Route: 048
  16. AMARYL [Concomitant]
     Route: 048

REACTIONS (1)
  - Erythema [Recovered/Resolved]
